FAERS Safety Report 8901937 (Version 1)
Quarter: 2012Q4

REPORT INFORMATION
  Report Type: Spontaneous
  Country: US (occurrence: None)
  Receive Date: 20121109
  Receipt Date: 20121109
  Transmission Date: 20130627
  Serious: Yes (Life-Threatening, Hospitalization)
  Sender: FDA-Public Use
  Company Number: None

PATIENT
  Age: 20 Year
  Sex: Female
  Weight: 58.97 kg

DRUGS (2)
  1. NUVA RING [Suspect]
     Indication: BIRTH CONTROL
     Dosage: One ring once a month vag
     Route: 067
     Dates: start: 20120320, end: 20121101
  2. NUVA RING [Suspect]
     Indication: MENSTRUAL CYCLE MANAGEMENT
     Dosage: One ring once a month vag
     Route: 067
     Dates: start: 20120320, end: 20121101

REACTIONS (3)
  - Pneumonia [None]
  - Pulmonary thrombosis [None]
  - Blood gases abnormal [None]
